FAERS Safety Report 21848650 (Version 2)
Quarter: 2023Q1

REPORT INFORMATION
  Report Type: Spontaneous
  Country: DE (occurrence: DE)
  Receive Date: 20230111
  Receipt Date: 20230116
  Transmission Date: 20230418
  Serious: Yes (Congenital Anomaly, Other)
  Sender: FDA-Public Use
  Company Number: DE-GLENMARK PHARMACEUTICALS-2022GMK077503

PATIENT

DRUGS (3)
  1. LACOSAMIDE [Suspect]
     Active Substance: LACOSAMIDE
     Indication: Foetal exposure during pregnancy
     Dosage: MOTHER^S DOSE: 300 MG, QD
     Route: 064
  2. LAMOTRIGINE [Suspect]
     Active Substance: LAMOTRIGINE
     Indication: Foetal exposure during pregnancy
     Dosage: MOTHER^S DOSE: UNK
     Route: 064
  3. PERAMPANEL [Suspect]
     Active Substance: PERAMPANEL
     Indication: Foetal exposure during pregnancy
     Dosage: MOTHER DOSE: UNK
     Route: 064

REACTIONS (2)
  - Cataract congenital [Unknown]
  - Foetal exposure during pregnancy [Unknown]
